FAERS Safety Report 17578496 (Version 2)
Quarter: 2020Q2

REPORT INFORMATION
  Report Type: Report from Study
  Country: US (occurrence: US)
  Receive Date: 20200325
  Receipt Date: 20200519
  Transmission Date: 20200713
  Serious: No
  Sender: FDA-Public Use
  Company Number: NVSC2020US083032

PATIENT
  Age: 40 Year
  Sex: Female

DRUGS (2)
  1. ENTRESTO [Suspect]
     Active Substance: SACUBITRIL\VALSARTAN
     Indication: PRODUCT USED FOR UNKNOWN INDICATION
     Dosage: 50 MG, UNKNOWN (24/26 MG)
     Route: 048
     Dates: start: 201908, end: 2019
  2. ENTRESTO [Suspect]
     Active Substance: SACUBITRIL\VALSARTAN
     Dosage: 100 MG, UNKNOWN (49/51 MG)
     Route: 048
     Dates: start: 2019

REACTIONS (5)
  - Pain [Recovered/Resolved]
  - Attention deficit hyperactivity disorder [Unknown]
  - Paraesthesia [Unknown]
  - Weight increased [Unknown]
  - Weight loss poor [Recovered/Resolved]

NARRATIVE: CASE EVENT DATE: 201908
